FAERS Safety Report 16111300 (Version 1)
Quarter: 2019Q1

REPORT INFORMATION
  Report Type: Spontaneous
  Country: US (occurrence: US)
  Receive Date: 20190325
  Receipt Date: 20190325
  Transmission Date: 20190418
  Serious: No
  Sender: FDA-Public Use
  Company Number: US-BIOGEN-2019BI00714155

PATIENT
  Sex: Female
  Weight: 125 kg

DRUGS (1)
  1. TECFIDERA [Suspect]
     Active Substance: DIMETHYL FUMARATE
     Indication: MULTIPLE SCLEROSIS
     Route: 048

REACTIONS (5)
  - Abdominal discomfort [Unknown]
  - Decreased appetite [Unknown]
  - Abdominal pain upper [Unknown]
  - Dyspepsia [Unknown]
  - Pain [Unknown]
